FAERS Safety Report 6218901-0 (Version None)
Quarter: 2009Q2

REPORT INFORMATION
  Report Type: 
  Country: None (occurrence: None)
  Receive Date: 20090608
  Receipt Date: 20090529
  Transmission Date: 20091009
  Serious: Yes (Hospitalization)
  Sender: FDA-Public Use
  Company Number: US-ABBOTT-09P-163-0576705-00

PATIENT
  Age: 71 Year
  Sex: Female

DRUGS (28)
  1. WARFARIN [Suspect]
     Indication: ATRIAL FIBRILLATION
     Dosage: 5-7.5 MG/DAY
  2. WARFARIN [Suspect]
  3. WARFARIN [Suspect]
     Dosage: 5-6 MG/DAY
  4. WARFARIN [Suspect]
  5. WARFARIN [Suspect]
  6. WARFARIN [Suspect]
  7. WARFARIN [Suspect]
  8. WARFARIN [Suspect]
  9. WARFARIN [Suspect]
  10. WARFARIN [Suspect]
  11. WARFARIN [Suspect]
  12. WARFARIN [Suspect]
  13. WARFARIN [Suspect]
  14. METOPROLOL SUCCINATE [Concomitant]
     Indication: DRUG USE FOR UNKNOWN INDICATION
  15. DIGOXIN [Concomitant]
     Indication: DRUG USE FOR UNKNOWN INDICATION
  16. METFORMIN HYDROCHLORIDE [Concomitant]
     Indication: DRUG USE FOR UNKNOWN INDICATION
  17. SIMVASTATIN [Concomitant]
     Indication: DRUG USE FOR UNKNOWN INDICATION
  18. FERROUS SULFATE TAB [Concomitant]
     Indication: DRUG USE FOR UNKNOWN INDICATION
  19. RAMIPRIL [Concomitant]
     Indication: DRUG USE FOR UNKNOWN INDICATION
  20. FUROSEMIDE [Concomitant]
     Indication: DRUG USE FOR UNKNOWN INDICATION
  21. PANTOPRAZOLE SODIUM [Concomitant]
     Indication: DRUG USE FOR UNKNOWN INDICATION
  22. PANTOPRAZOLE SODIUM [Concomitant]
  23. ACETAMINOPHEN [Concomitant]
     Indication: PAIN
     Dosage: NOT REPORTED
  24. HEPARIN [Concomitant]
     Indication: THROMBOSIS PROPHYLAXIS
     Route: 058
  25. HEPARIN [Concomitant]
     Dosage: INFUSION
  26. HEPARIN [Concomitant]
     Route: 042
  27. ENOXAPARIN SODIUM [Concomitant]
     Indication: THROMBOSIS PROPHYLAXIS
  28. ENOXAPARIN SODIUM [Concomitant]

REACTIONS (1)
  - DRUG RESISTANCE [None]
